FAERS Safety Report 19393649 (Version 1)
Quarter: 2021Q2

REPORT INFORMATION
  Report Type: Spontaneous
  Country: US (occurrence: US)
  Receive Date: 20210608
  Receipt Date: 20210608
  Transmission Date: 20210717
  Serious: Yes (Hospitalization)
  Sender: FDA-Public Use
  Company Number: None

PATIENT
  Sex: Female

DRUGS (20)
  1. CIPROFLOXACIN. [Concomitant]
     Active Substance: CIPROFLOXACIN
  2. MAGNESIUM?OX SUC ER [Concomitant]
  3. LOTEPREDNOL [Concomitant]
     Active Substance: LOTEPREDNOL
  4. TOBRAMYCIN OP [Concomitant]
  5. ASPIRIN. [Concomitant]
     Active Substance: ASPIRIN
  6. FAMOTIDINE. [Concomitant]
     Active Substance: FAMOTIDINE
  7. LOTEMAX [Concomitant]
     Active Substance: LOTEPREDNOL ETABONATE
  8. ESCITALOPRAM [Concomitant]
     Active Substance: ESCITALOPRAM OXALATE
  9. NEPHRON [Concomitant]
  10. TRELEGY ELLIPTA [Concomitant]
     Active Substance: FLUTICASONE FUROATE\UMECLIDINIUM BROMIDE\VILANTEROL TRIFENATATE
  11. DUREZOL [Concomitant]
     Active Substance: DIFLUPREDNATE
  12. GABAPENTIN. [Concomitant]
     Active Substance: GABAPENTIN
  13. METOPROL TAR [Concomitant]
  14. PROLENSA [Concomitant]
     Active Substance: BROMFENAC SODIUM
  15. VERAPAMIL [Concomitant]
     Active Substance: VERAPAMIL HYDROCHLORIDE
  16. PANTOPRAZOLE [Concomitant]
     Active Substance: PANTOPRAZOLE
  17. PREDNISONE. [Concomitant]
     Active Substance: PREDNISONE
  18. SOD CHL 3% [Concomitant]
  19. TOBRAMYCIN 300MG/5ML TOBI GEQ [Suspect]
     Active Substance: TOBRAMYCIN
     Indication: BRONCHIECTASIS
     Route: 055
     Dates: start: 20160308
  20. ATORVASTATIN [Concomitant]
     Active Substance: ATORVASTATIN

REACTIONS (2)
  - Cerebrovascular accident [None]
  - Therapy interrupted [None]
